FAERS Safety Report 6058008-9 (Version None)
Quarter: 2009Q1

REPORT INFORMATION
  Report Type: 
  Country: None (occurrence: None)
  Receive Date: 20090127
  Receipt Date: 20090113
  Transmission Date: 20090719
  Serious: Yes (Other)
  Sender: FDA-Public Use
  Company Number: 230458K09USA

PATIENT
  Age: 30 Year
  Sex: Female
  Weight: 99 kg

DRUGS (1)
  1. REBIF [Suspect]
     Indication: MULTIPLE SCLEROSIS
     Dosage: 44 MCG, 3 IN 1 WEEKS, SUBCUTANEOUS
     Route: 058
     Dates: start: 20040816

REACTIONS (7)
  - ASTHENIA [None]
  - IUCD COMPLICATION [None]
  - MYALGIA [None]
  - OVARIAN CYST RUPTURED [None]
  - TOOTH DISORDER [None]
  - TOOTH FRACTURE [None]
  - WEIGHT INCREASED [None]
